FAERS Safety Report 6664759-5 (Version None)
Quarter: 2010Q1

REPORT INFORMATION
  Report Type: 
  Country: None (occurrence: None)
  Receive Date: 20100330
  Receipt Date: 20100308
  Transmission Date: 20100710
  Serious: Yes (Hospitalization, Other)
  Sender: FDA-Public Use
  Company Number: ADE2009-0511

PATIENT
  Age: 61 Year
  Sex: Male

DRUGS (6)
  1. CIPROFLOXACIN [Suspect]
     Indication: INFECTION
     Dosage: 500 MG, BID, ORAL
     Route: 048
     Dates: start: 20090112, end: 20090114
  2. ACETYLSALICYLIC ACID [Concomitant]
  3. AMIODARONE HCL [Concomitant]
  4. BISOPROLOL [Concomitant]
  5. ERYTHROMYCIN [Concomitant]
  6. TRIMETHOPRIM [Concomitant]

REACTIONS (21)
  - ARTHRALGIA [None]
  - ATRIAL FIBRILLATION [None]
  - BACK PAIN [None]
  - CHEST PAIN [None]
  - CONTRAINDICATION TO MEDICAL TREATMENT [None]
  - DEAFNESS UNILATERAL [None]
  - DISCOMFORT [None]
  - DIZZINESS [None]
  - FALL [None]
  - FEELING ABNORMAL [None]
  - HEADACHE [None]
  - HEART RATE INCREASED [None]
  - MALAISE [None]
  - MYALGIA [None]
  - NECK PAIN [None]
  - OEDEMA PERIPHERAL [None]
  - PAIN IN EXTREMITY [None]
  - PALPITATIONS [None]
  - PERIPHERAL EMBOLISM [None]
  - PRESYNCOPE [None]
  - TINNITUS [None]
